FAERS Safety Report 4790790-0 (Version None)
Quarter: 2005Q3

REPORT INFORMATION
  Report Type: 
  Country: None (occurrence: None)
  Receive Date: 20050914
  Receipt Date: 20050713
  Transmission Date: 20060218
  Serious: Yes (Death)
  Sender: FDA-Public Use
  Company Number: 028-20785-05070223

PATIENT
  Sex: Male

DRUGS (7)
  1. THALOMID [Suspect]
     Indication: MULTIPLE MYELOMA
     Dosage: 50 MG, DAILY, ORAL
     Route: 048
     Dates: start: 20050101, end: 20050101
  2. DILAUDID [Concomitant]
  3. AREDIA [Concomitant]
  4. CELEXA [Concomitant]
  5. MOGADON (NITRAZEPAM) [Concomitant]
  6. PANTOPRAZOLE SODIUM [Concomitant]
  7. SENEKOT (SENNA FRUIT) [Concomitant]

REACTIONS (1)
  - DEATH [None]
